FAERS Safety Report 13825132 (Version 2)
Quarter: 2018Q3

REPORT INFORMATION
  Report Type: Report from Study
  Country: BR (occurrence: BR)
  Receive Date: 20170802
  Receipt Date: 20180727
  Transmission Date: 20181010
  Serious: Yes (Hospitalization)
  Sender: FDA-Public Use
  Company Number: BR-UCBSA-2017029730

PATIENT
  Age: 36 Year
  Sex: Male
  Weight: 82 kg

DRUGS (7)
  1. LEVETIRACETAM. [Suspect]
     Active Substance: LEVETIRACETAM
     Dosage: 750 MG, 2X/DAY (BID)
     Route: 048
  2. LAMICTAL [Concomitant]
     Active Substance: LAMOTRIGINE
     Indication: EPILEPSY
  3. DEPAKENE [Concomitant]
     Active Substance: VALPROIC ACID
     Indication: EPILEPSY
  4. LEVETIRACETAM. [Suspect]
     Active Substance: LEVETIRACETAM
     Dosage: 500 MG, 3X/DAY (TID)
     Route: 048
     Dates: start: 2017, end: 2017
  5. LEVETIRACETAM. [Suspect]
     Active Substance: LEVETIRACETAM
     Dosage: 250 MG 3 TIMES A DAY AND 750 MG ONCE A DAY
     Route: 048
     Dates: start: 2017
  6. LEVETIRACETAM. [Suspect]
     Active Substance: LEVETIRACETAM
     Dosage: 250 MG, 3X/DAY (TID)
     Route: 048
     Dates: start: 2017, end: 2017
  7. LEVETIRACETAM. [Suspect]
     Active Substance: LEVETIRACETAM
     Indication: EPILEPSY
     Dosage: 500 MG, ONCE DAILY (QD)
     Route: 048
     Dates: start: 2015

REACTIONS (6)
  - Seizure [Unknown]
  - Lower limb fracture [Recovering/Resolving]
  - Bacterial infection [Recovered/Resolved]
  - Peripheral swelling [Unknown]
  - Eating disorder [Unknown]
  - Off label use [Unknown]

NARRATIVE: CASE EVENT DATE: 2015
